FAERS Safety Report 7427742-8 (Version None)
Quarter: 2011Q2

REPORT INFORMATION
  Report Type: 
  Country: None (occurrence: None)
  Receive Date: 20110421
  Receipt Date: 20110411
  Transmission Date: 20111010
  Serious: Yes (Other)
  Sender: FDA-Public Use
  Company Number: US-ELI_LILLY_AND_COMPANY-US201104003384

PATIENT
  Age: 22 Year
  Sex: Female

DRUGS (4)
  1. CYMBALTA [Suspect]
     Indication: DEPRESSION
     Dosage: 30 MG, QD
  2. CYMBALTA [Suspect]
     Dosage: 60 MG, QD
     Dates: end: 20110301
  3. NORTREL 7/7/7 [Concomitant]
     Indication: CONTRACEPTION
  4. CYMBALTA [Suspect]
     Dosage: UNK, UNKNOWN
     Dates: start: 20110301

REACTIONS (14)
  - CONTUSION [None]
  - PAIN OF SKIN [None]
  - DEPRESSION [None]
  - PANIC ATTACK [None]
  - SKIN EXFOLIATION [None]
  - MALAISE [None]
  - RASH MACULAR [None]
  - EATING DISORDER [None]
  - DIARRHOEA [None]
  - INSOMNIA [None]
  - HEPATIC ENZYME INCREASED [None]
  - SUICIDAL BEHAVIOUR [None]
  - HEADACHE [None]
  - NAUSEA [None]
